FAERS Safety Report 16751513 (Version 2)
Quarter: 2019Q4

REPORT INFORMATION
  Report Type: Spontaneous
  Country: US (occurrence: US)
  Receive Date: 20190828
  Receipt Date: 20191127
  Transmission Date: 20200122
  Serious: Yes (Other)
  Sender: FDA-Public Use
  Company Number: US-JNJFOC-20190832882

PATIENT
  Age: 73 Year
  Sex: Male

DRUGS (15)
  1. PREDNISONE. [Suspect]
     Active Substance: PREDNISONE
     Indication: CD4 LYMPHOCYTES DECREASED
  2. FINASTERIDE. [Concomitant]
     Active Substance: FINASTERIDE
     Indication: ANTIANDROGEN THERAPY
     Dosage: DAILY.
     Route: 065
     Dates: start: 20150209
  3. LUPRON [Concomitant]
     Active Substance: LEUPROLIDE ACETATE
     Indication: CD4 LYMPHOCYTES DECREASED
  4. METAMUCIL                          /00091301/ [Concomitant]
     Active Substance: PSYLLIUM HUSK
     Indication: FREQUENT BOWEL MOVEMENTS
     Dosage: FIBER THERAPY, DAILY.
     Route: 065
  5. PROLIA [Concomitant]
     Active Substance: DENOSUMAB
     Indication: BONE DISORDER
     Route: 065
     Dates: start: 20190325
  6. ZYTIGA [Suspect]
     Active Substance: ABIRATERONE ACETATE
     Indication: ANTIANDROGEN THERAPY
     Route: 048
     Dates: start: 20181217, end: 20190330
  7. VITAMIN D3 [Concomitant]
     Active Substance: CHOLECALCIFEROL
     Indication: PRODUCT USED FOR UNKNOWN INDICATION
     Dosage: DAILY.
     Route: 065
  8. LISINOPRIL. [Concomitant]
     Active Substance: LISINOPRIL
     Indication: BLOOD PRESSURE MEASUREMENT
     Dosage: DALY
     Route: 065
     Dates: start: 2005
  9. FINASTERIDE. [Concomitant]
     Active Substance: FINASTERIDE
     Indication: CD4 LYMPHOCYTES DECREASED
  10. LUPRON [Concomitant]
     Active Substance: LEUPROLIDE ACETATE
     Indication: ANTIANDROGEN THERAPY
     Dates: start: 20161219
  11. ZYTIGA [Suspect]
     Active Substance: ABIRATERONE ACETATE
     Indication: CD4 LYMPHOCYTES DECREASED
     Route: 048
     Dates: start: 20190413
  12. PREDNISONE. [Suspect]
     Active Substance: PREDNISONE
     Indication: ANTIANDROGEN THERAPY
     Dosage: DAILY.
     Route: 065
     Dates: start: 20181217
  13. CALCIUM D3 [Concomitant]
     Active Substance: CALCIUM\CHOLECALCIFEROL
     Indication: BONE DISORDER
     Dosage: DAILY.
     Route: 065
  14. ASPRIN [Concomitant]
     Active Substance: ASPIRIN
     Indication: ANTICOAGULANT THERAPY
     Dosage: DAILY AT THE END OF DAY (EOD).
     Route: 065
  15. ROSUVASTATIN. [Concomitant]
     Active Substance: ROSUVASTATIN
     Indication: BLOOD CHOLESTEROL
     Dosage: DAILY.
     Route: 065
     Dates: start: 2006

REACTIONS (4)
  - Blood pressure increased [Recovered/Resolved]
  - Rash [Unknown]
  - Feeling abnormal [Unknown]
  - Hunger [Unknown]

NARRATIVE: CASE EVENT DATE: 201903
